FAERS Safety Report 12265209 (Version 2)
Quarter: 2017Q2

REPORT INFORMATION
  Report Type: Spontaneous
  Country: US (occurrence: US)
  Receive Date: 20160413
  Receipt Date: 20170518
  Transmission Date: 20170830
  Serious: No
  Sender: FDA-Public Use
  Company Number: US-TEVA-651010ACC

PATIENT
  Sex: Female
  Weight: 67.65 kg

DRUGS (2)
  1. PARAGARD T 380A [Suspect]
     Active Substance: COPPER
     Indication: CONTRACEPTION
     Dates: start: 20160219, end: 20160321
  2. IBUPROFEN. [Concomitant]
     Active Substance: IBUPROFEN
     Dosage: PRN

REACTIONS (1)
  - Device expulsion [Recovered/Resolved]
